FAERS Safety Report 5365615-5 (Version None)
Quarter: 2007Q2

REPORT INFORMATION
  Report Type: 
  Country: None (occurrence: None)
  Receive Date: 20070611
  Receipt Date: 20061130
  Transmission Date: 20071010
  Serious: Yes (Death, Other)
  Sender: FDA-Public Use
  Company Number: USA-2006-0025835

PATIENT
  Sex: Male

DRUGS (3)
  1. OXYCONTIN [Suspect]
     Indication: BACK PAIN
     Dosage: 160 MG, BID,
     Dates: start: 20060201, end: 20060201
  2. MORPHINE SULFATE [Suspect]
     Indication: BACK PAIN
     Dosage: 30 MG, TID
     Dates: start: 20060201, end: 20060201
  3. ALCOHOL (ETHANOL) [Suspect]
     Indication: ALCOHOL USE
     Dates: start: 20060201, end: 20060201

REACTIONS (1)
  - SUBSTANCE ABUSE [None]
